FAERS Safety Report 9472812 (Version 1)
Quarter: 2013Q3

REPORT INFORMATION
  Report Type: Spontaneous
  Country: IL (occurrence: IL)
  Receive Date: 20130823
  Receipt Date: 20130823
  Transmission Date: 20140515
  Serious: Yes (Hospitalization, Other)
  Sender: FDA-Public Use
  Company Number: PHHY2013IL090663

PATIENT
  Age: 62 Year
  Sex: Female

DRUGS (11)
  1. ZOMERA [Suspect]
     Dosage: UNK UKN, UNK
  2. FEMARA [Suspect]
     Dosage: UNK UKN, UNK
  3. AFINITOR [Suspect]
     Indication: BREAST CANCER
     Dosage: 10 MG, UNK
     Dates: start: 20130213
  4. AFINITOR [Suspect]
     Dosage: 5 MG PER DAY
     Dates: start: 20130627
  5. AREDIA [Suspect]
     Dosage: UNK UKN, UNK
  6. FASLODEX [Concomitant]
     Dosage: UNK UKN, UNK
  7. DOXIL [Concomitant]
     Dosage: UNK UKN, UNK
     Dates: end: 201104
  8. TAXOL [Concomitant]
     Dosage: UNK UKN, UNK
  9. XELODA [Concomitant]
     Dosage: UNK UKN, UNK
  10. DENOSUMAB [Concomitant]
     Dosage: UNK UKN, UNK
  11. AROMASIN [Concomitant]
     Dosage: UNK UKN, UNK

REACTIONS (9)
  - Dyspnoea [Recovered/Resolved]
  - Anaemia [Recovering/Resolving]
  - Neck mass [Unknown]
  - Pulmonary mass [Recovering/Resolving]
  - Atelectasis [Recovering/Resolving]
  - Spinal cord compression [Unknown]
  - Diplegia [Unknown]
  - Pulmonary embolism [Recovering/Resolving]
  - Cough [Recovering/Resolving]
